FAERS Safety Report 15319112 (Version 2)
Quarter: 2018Q3

REPORT INFORMATION
  Report Type: Report from Study
  Country: US (occurrence: US)
  Receive Date: 20180826
  Receipt Date: 20180924
  Transmission Date: 20181010
  Serious: Yes (Hospitalization)
  Sender: FDA-Public Use
  Company Number: US-ACTELION-A-US2018-177605

PATIENT
  Age: 89 Year
  Sex: Male

DRUGS (1)
  1. OPSUMIT [Suspect]
     Active Substance: MACITENTAN
     Indication: PULMONARY ARTERIAL HYPERTENSION
     Dosage: UNK
     Route: 048
     Dates: start: 20180801, end: 20180905

REACTIONS (5)
  - Altered state of consciousness [Recovering/Resolving]
  - Anuria [Recovering/Resolving]
  - Hypoglycaemia [Recovering/Resolving]
  - Blood pressure increased [Recovering/Resolving]
  - Oedema peripheral [Recovering/Resolving]
